FAERS Safety Report 9972595 (Version 1)
Quarter: 2014Q1

REPORT INFORMATION
  Report Type: Report from Study
  Country: US (occurrence: US)
  Receive Date: 20140306
  Receipt Date: 20140306
  Transmission Date: 20141002
  Serious: No
  Sender: FDA-Public Use
  Company Number: US-ABBVIE-13P-163-1154193-00

PATIENT
  Age: 61 Year
  Sex: Female

DRUGS (7)
  1. HUMIRA [Suspect]
     Indication: RHEUMATOID ARTHRITIS
     Dates: start: 20130924
  2. LEFLUNOMIDE [Concomitant]
     Indication: RHEUMATOID ARTHRITIS
     Dosage: 10MG DAILY
  3. LOVASTATIN [Concomitant]
     Indication: BLOOD CHOLESTEROL
     Dosage: 20MG DAILY
  4. AMBIEN [Concomitant]
     Indication: INSOMNIA
  5. ASA [Concomitant]
     Indication: THROMBOSIS PROPHYLAXIS
  6. FISH OIL [Concomitant]
     Indication: VITAMIN SUPPLEMENTATION
  7. CO Q10 [Concomitant]
     Indication: VITAMIN SUPPLEMENTATION
     Dosage: 2 100MG

REACTIONS (3)
  - Dermatitis contact [Not Recovered/Not Resolved]
  - Labyrinthitis [Not Recovered/Not Resolved]
  - Rash [Not Recovered/Not Resolved]
